FAERS Safety Report 9505510 (Version 1)
Quarter: 2013Q1

REPORT INFORMATION
  Report Type: Spontaneous
  Country: US (occurrence: None)
  Receive Date: 20130220
  Receipt Date: 20130220
  Transmission Date: 20140127
  Serious: No
  Sender: FDA-Public Use
  Company Number: 1000041804

PATIENT
  Age: 64 Year
  Sex: Female

DRUGS (3)
  1. VIIBYRD (VILAZODONE HYDROCHLORIDE) [Suspect]
     Indication: DEPRESSION
     Dosage: 10 MG (10 MG, 1 IN 1 D), ORAL
     Route: 048
     Dates: start: 201208, end: 2012
  2. XANAX (ALPRAZOLAM) (TABLETS) (ALPRAZOLAM) [Concomitant]
  3. LAMICTAL (LAMOTRIGINE) [Concomitant]

REACTIONS (1)
  - Mania [None]
